FAERS Safety Report 5101996-5 (Version None)
Quarter: 2006Q3

REPORT INFORMATION
  Report Type: 
  Country: None (occurrence: None)
  Receive Date: 20060907
  Receipt Date: 20060825
  Transmission Date: 20061208
  Serious: Yes (Hospitalization)
  Sender: FDA-Public Use
  Company Number: 2006PV020068

PATIENT
  Age: 61 Year
  Sex: Female
  Weight: 68.0396 kg

DRUGS (5)
  1. BYETTA [Suspect]
     Indication: DIABETES MELLITUS NON-INSULIN-DEPENDENT
     Dosage: 5 MCG;BID;SC
     Route: 058
     Dates: start: 20060823, end: 20060823
  2. LANTUS [Concomitant]
  3. METFORMIN [Concomitant]
  4. ACTOS [Concomitant]
  5. GLUCOTROL [Concomitant]

REACTIONS (4)
  - FLANK PAIN [None]
  - KIDNEY INFECTION [None]
  - NEPHROLITHIASIS [None]
  - PAIN [None]
